FAERS Safety Report 4926262-X (Version None)
Quarter: 2006Q1

REPORT INFORMATION
  Report Type: 
  Country: None (occurrence: None)
  Receive Date: 20060228
  Receipt Date: 20051221
  Transmission Date: 20060701
  Serious: No
  Sender: FDA-Public Use
  Company Number: US-GLAXOSMITHKLINE-A0586655A

PATIENT
  Age: 48 Year
  Sex: Female

DRUGS (3)
  1. LAMICTAL [Suspect]
     Indication: BIPOLAR DISORDER
     Dosage: 25MG PER DAY
     Route: 048
     Dates: start: 20050101
  2. WELLBUTRIN [Suspect]
     Indication: DEPRESSION
     Dosage: 150MG PER DAY
     Route: 048
     Dates: start: 20051201
  3. UNKNOWN [Concomitant]

REACTIONS (2)
  - DEPRESSION [None]
  - DRUG INEFFECTIVE [None]
